FAERS Safety Report 23139048 (Version 1)
Quarter: 2023Q4

REPORT INFORMATION
  Report Type: Spontaneous
  Country: US (occurrence: None)
  Receive Date: 20231101
  Receipt Date: 20231101
  Transmission Date: 20240110
  Serious: No
  Sender: FDA-Public Use
  Company Number: None

PATIENT
  Age: 16 Month
  Sex: Male

DRUGS (2)
  1. VIGABATRIN [Suspect]
     Active Substance: VIGABATRIN
     Indication: Partial seizures
  2. VIGABATRIN [Suspect]
     Active Substance: VIGABATRIN
     Indication: Partial seizures

REACTIONS (2)
  - Muscle spasms [None]
  - Seizure [None]

NARRATIVE: CASE EVENT DATE: 20231031
